FAERS Safety Report 13407121 (Version 1)
Quarter: 2017Q2

REPORT INFORMATION
  Report Type: Spontaneous
  Country: US (occurrence: US)
  Receive Date: 20170405
  Receipt Date: 20170405
  Transmission Date: 20170830
  Serious: Yes (Other)
  Sender: FDA-Public Use
  Company Number: US-EAGLE PHARMACEUTICALS, INC.-US-2017EAG000019

PATIENT
  Age: 72 Year
  Sex: Male
  Weight: 76.64 kg

DRUGS (13)
  1. CRESTOR [Concomitant]
     Active Substance: ROSUVASTATIN CALCIUM
     Indication: PRODUCT USED FOR UNKNOWN INDICATION
     Dosage: UNK
  2. BENDEKA [Suspect]
     Active Substance: BENDAMUSTINE HYDROCHLORIDE
     Indication: B-CELL LYMPHOMA
     Dosage: 175 MG, UNK
     Dates: start: 20161205
  3. BENDEKA [Suspect]
     Active Substance: BENDAMUSTINE HYDROCHLORIDE
     Dosage: 175 MG, (CYCLE 3, DAY 1) DILUTED WITH 50 ML NORMAL SALINE
     Dates: start: 20170206, end: 201702
  4. GABAPENTIN. [Concomitant]
     Active Substance: GABAPENTIN
     Indication: PRODUCT USED FOR UNKNOWN INDICATION
     Dosage: UNK
  5. GAZYVA [Concomitant]
     Active Substance: OBINUTUZUMAB
     Indication: B-CELL LYMPHOMA
     Dosage: UNK
  6. FAMVIR [Concomitant]
     Active Substance: FAMCICLOVIR
     Indication: PRODUCT USED FOR UNKNOWN INDICATION
     Dosage: UNK
  7. PLAVIX [Concomitant]
     Active Substance: CLOPIDOGREL BISULFATE
     Indication: PRODUCT USED FOR UNKNOWN INDICATION
     Dosage: UNK
  8. BENADRYL [Concomitant]
     Active Substance: DIPHENHYDRAMINE HYDROCHLORIDE
     Indication: PREMEDICATION
     Dosage: UNK
  9. LISINOPRIL. [Concomitant]
     Active Substance: LISINOPRIL
     Indication: PRODUCT USED FOR UNKNOWN INDICATION
     Dosage: UNK
  10. DEXAMETHASONE. [Concomitant]
     Active Substance: DEXAMETHASONE
     Indication: PREMEDICATION
     Dosage: UNK
  11. TOPROL XL [Concomitant]
     Active Substance: METOPROLOL SUCCINATE
     Indication: PRODUCT USED FOR UNKNOWN INDICATION
     Dosage: UNK
  12. ZOFRAN [Concomitant]
     Active Substance: ONDANSETRON HYDROCHLORIDE
     Indication: PREMEDICATION
     Dosage: UNK
  13. TYLENOL [Concomitant]
     Active Substance: ACETAMINOPHEN
     Indication: PREMEDICATION
     Dosage: UNK

REACTIONS (2)
  - White blood cell count decreased [Not Recovered/Not Resolved]
  - Neutrophil count decreased [Unknown]

NARRATIVE: CASE EVENT DATE: 20170206
